FAERS Safety Report 13871111 (Version 2)
Quarter: 2017Q4

REPORT INFORMATION
  Report Type: Spontaneous
  Country: US (occurrence: US)
  Receive Date: 20170816
  Receipt Date: 20171012
  Transmission Date: 20180320
  Serious: Yes (Other)
  Sender: FDA-Public Use
  Company Number: US-CIPLA LTD.-2017US13708

PATIENT

DRUGS (3)
  1. TAMSULOSIN [Interacting]
     Active Substance: TAMSULOSIN
     Indication: BENIGN PROSTATIC HYPERPLASIA
     Dosage: 0.4 MG, QD, FOUR WEEKS BEFORE CLINIC VISIT
     Route: 065
     Dates: start: 20151023, end: 20151125
  2. RANITIDINE. [Interacting]
     Active Substance: RANITIDINE
     Indication: GASTROOESOPHAGEAL REFLUX DISEASE
     Dosage: 300 MG, QD
     Route: 065
  3. FINASTERIDE. [Suspect]
     Active Substance: FINASTERIDE
     Indication: BENIGN PROSTATIC HYPERPLASIA
     Dosage: 5 MG, QD, FOR THE MOST RECENT NINE MONTHS

REACTIONS (5)
  - Reversible airways obstruction [Recovered/Resolved]
  - Condition aggravated [Recovered/Resolved]
  - Sleep apnoea syndrome [Recovered/Resolved]
  - Drug ineffective [Unknown]
  - Drug interaction [Unknown]

NARRATIVE: CASE EVENT DATE: 20151025
